FAERS Safety Report 13767285 (Version 2)
Quarter: 2017Q3

REPORT INFORMATION
  Report Type: Report from Study
  Country: CA (occurrence: CA)
  Receive Date: 20170719
  Receipt Date: 20170731
  Transmission Date: 20171127
  Serious: Yes (Other)
  Sender: FDA-Public Use
  Company Number: CA-HORIZON-RAV-0151-2017

PATIENT
  Sex: Female

DRUGS (7)
  1. SODIUM CITRATE. [Concomitant]
     Active Substance: SODIUM CITRATE
  2. L-ARGININE [Concomitant]
     Active Substance: ARGININE
  3. RAVICTI [Suspect]
     Active Substance: GLYCEROL PHENYLBUTYRATE
     Indication: ARGININOSUCCINATE LYASE DEFICIENCY
     Dosage: 5 ML QID
     Route: 048
     Dates: start: 20170505, end: 20170711
  4. DEPO-PROVERA [Concomitant]
     Active Substance: MEDROXYPROGESTERONE ACETATE
  5. FRISIUM [Concomitant]
     Active Substance: CLOBAZAM
  6. LAMICTAL [Concomitant]
     Active Substance: LAMOTRIGINE
  7. PHEBURANE [Concomitant]
     Dosage: TID
     Dates: start: 20100101, end: 2017

REACTIONS (8)
  - Product colour issue [Unknown]
  - Diarrhoea [Recovering/Resolving]
  - Drug ineffective [Not Recovered/Not Resolved]
  - Drug effect decreased [Not Recovered/Not Resolved]
  - Food aversion [Not Recovered/Not Resolved]
  - Retching [Unknown]
  - Hyperammonaemia [Not Recovered/Not Resolved]
  - Decreased appetite [Not Recovered/Not Resolved]

NARRATIVE: CASE EVENT DATE: 2017
